FAERS Safety Report 15331921 (Version 9)
Quarter: 2022Q4

REPORT INFORMATION
  Report Type: Spontaneous
  Country: US (occurrence: US)
  Receive Date: 20180829
  Receipt Date: 20221229
  Transmission Date: 20230112
  Serious: Yes (Other)
  Sender: FDA-Public Use
  Company Number: US-PFIZER INC-2018345158

PATIENT
  Age: 26 Year
  Sex: Male

DRUGS (5)
  1. BENEFIX [Suspect]
     Active Substance: COAGULATION FACTOR IX RECOMBINANT HUMAN\ISOPROPYL ALCOHOL
     Indication: Haemorrhage
     Dosage: 3450 - 4140 UNITS EVERY 3 DAYS/FOR PROPHY (50-60 U/KG)
  2. BENEFIX [Suspect]
     Active Substance: COAGULATION FACTOR IX RECOMBINANT HUMAN\ISOPROPYL ALCOHOL
     Indication: Prophylaxis
     Dosage: 100-120 U/KG (6900 U - 8289 U)
  3. BENEFIX [Suspect]
     Active Substance: COAGULATION FACTOR IX RECOMBINANT HUMAN\ISOPROPYL ALCOHOL
     Dosage: PROPHYLAXIS 50-60 UNITS/KG EVERY 3 DAYS BREAK THROUGH BLEEDING
  4. BENEFIX [Suspect]
     Active Substance: COAGULATION FACTOR IX RECOMBINANT HUMAN\ISOPROPYL ALCOHOL
     Dosage: MINOR BLEEDS 50-60 UNITS/KG IV PUSH
     Route: 042
  5. BENEFIX [Suspect]
     Active Substance: COAGULATION FACTOR IX RECOMBINANT HUMAN\ISOPROPYL ALCOHOL
     Dosage: MAJOR/JOINT BLEEDS 100-120 UNITS/KG AT TIME OF BLEED

REACTIONS (5)
  - Muscle haemorrhage [Unknown]
  - Haemorrhage [Unknown]
  - Ankle fracture [Unknown]
  - Myalgia [Unknown]
  - Weight decreased [Unknown]
